FAERS Safety Report 10356733 (Version 2)
Quarter: 2014Q3

REPORT INFORMATION
  Report Type: Spontaneous
  Country: US (occurrence: US)
  Receive Date: 20140801
  Receipt Date: 20140801
  Transmission Date: 20150326
  Serious: No
  Sender: FDA-Public Use
  Company Number: US-DRREDDYS-USA/USA/13/0035746

PATIENT
  Age: 46 Year
  Sex: Female
  Weight: 72.5 kg

DRUGS (1)
  1. OMEPRAZOLE MAGNESIUM DELAYED RELEASE OTC [Suspect]
     Active Substance: OMEPRAZOLE MAGNESIUM
     Indication: GASTROOESOPHAGEAL REFLUX DISEASE
     Route: 048
     Dates: start: 20131031

REACTIONS (6)
  - Dyspepsia [Not Recovered/Not Resolved]
  - Back pain [Unknown]
  - Product commingling [Unknown]
  - Product quality issue [Unknown]
  - Product physical issue [Unknown]
  - Nausea [Unknown]

NARRATIVE: CASE EVENT DATE: 2013
